FAERS Safety Report 22636932 (Version 2)
Quarter: 2023Q2

REPORT INFORMATION
  Report Type: Report from Study
  Country: US (occurrence: US)
  Receive Date: 20230626
  Receipt Date: 20230628
  Transmission Date: 20230722
  Serious: No
  Sender: FDA-Public Use
  Company Number: US-002147023-NVSC2023US143426

PATIENT
  Age: 41 Year
  Sex: Male

DRUGS (4)
  1. COSENTYX [Suspect]
     Active Substance: SECUKINUMAB
     Indication: Psoriasis
     Dosage: UNK
     Route: 065
  2. DESONIDE [Concomitant]
     Active Substance: DESONIDE
     Indication: Psoriasis
     Dosage: UNK
     Route: 065
  3. KETOCONAZOLE [Concomitant]
     Active Substance: KETOCONAZOLE
     Indication: Psoriasis
     Dosage: UNK
     Route: 065
  4. HYDROCORTISONE [Concomitant]
     Active Substance: HYDROCORTISONE
     Indication: Psoriasis
     Dosage: UNK
     Route: 065
     Dates: start: 20220929

REACTIONS (2)
  - Psoriasis [Not Recovered/Not Resolved]
  - Therapeutic product effect incomplete [Unknown]

NARRATIVE: CASE EVENT DATE: 20160509
